FAERS Safety Report 19766637 (Version 1)
Quarter: 2021Q3

REPORT INFORMATION
  Report Type: Spontaneous
  Country: NL (occurrence: NL)
  Receive Date: 20210830
  Receipt Date: 20210830
  Transmission Date: 20211014
  Serious: Yes (Other)
  Sender: FDA-Public Use
  Company Number: NL-SA-2021SA283570

PATIENT
  Age: 39 Year
  Sex: Female

DRUGS (5)
  1. ACETYLSALICYLIC ACID [Suspect]
     Active Substance: ASPIRIN
     Indication: SYSTEMIC LUPUS ERYTHEMATOSUS
  2. TRIAMCINOLONE ACETONIDE. [Suspect]
     Active Substance: TRIAMCINOLONE ACETONIDE
     Indication: OLIGOARTHRITIS
  3. ETANERCEPT [Suspect]
     Active Substance: ETANERCEPT
  4. HYDROXYCHLOROQUINE [Suspect]
     Active Substance: HYDROXYCHLOROQUINE
  5. AZATHIOPRINE. [Suspect]
     Active Substance: AZATHIOPRINE
     Indication: ARTHRALGIA

REACTIONS (3)
  - Haemorrhage in pregnancy [Recovered/Resolved]
  - Maternal exposure during pregnancy [Recovered/Resolved]
  - Placenta accreta [Recovered/Resolved]
